FAERS Safety Report 8687707 (Version 3)
Quarter: 2013Q4

REPORT INFORMATION
  Report Type: Spontaneous
  Country: US (occurrence: US)
  Receive Date: 20120727
  Receipt Date: 20131101
  Transmission Date: 20140711
  Serious: No
  Sender: FDA-Public Use
  Company Number: US-009507513-2012SP025940

PATIENT
  Age: 26 Year
  Sex: Female
  Weight: 136.8 kg

DRUGS (6)
  1. CLARITIN-D-24 [Suspect]
     Indication: UPPER RESPIRATORY TRACT CONGESTION
     Dosage: UNK UNK, BID
     Route: 048
     Dates: start: 201203
  2. CLARITIN-D-24 [Suspect]
     Indication: EYE PRURITUS
  3. CLARITIN-D-24 [Suspect]
     Indication: SNEEZING
  4. CLARITIN-D-24 [Suspect]
     Indication: COUGH
  5. CLARITIN-D-24 [Suspect]
     Indication: SINUS DISORDER
  6. CLARITIN-D-24 [Suspect]
     Indication: SEASONAL ALLERGY

REACTIONS (4)
  - Dyspnoea [Recovered/Resolved]
  - Condition aggravated [Recovered/Resolved]
  - Ocular hyperaemia [Recovered/Resolved]
  - No therapeutic response [Recovered/Resolved]
